FAERS Safety Report 11283592 (Version 1)
Quarter: 2015Q3

REPORT INFORMATION
  Report Type: Report from Study
  Country: RO (occurrence: RO)
  Receive Date: 20150720
  Receipt Date: 20150720
  Transmission Date: 20151125
  Serious: Yes (Death, Other)
  Sender: FDA-Public Use
  Company Number: RO-ROCHE-1607174

PATIENT

DRUGS (4)
  1. INFLIXIMAB [Suspect]
     Active Substance: INFLIXIMAB
     Indication: RHEUMATOID ARTHRITIS
     Route: 065
  2. RITUXIMAB [Suspect]
     Active Substance: RITUXIMAB
     Indication: RHEUMATOID ARTHRITIS
     Route: 065
  3. ETANERCEPT [Suspect]
     Active Substance: ETANERCEPT
     Indication: RHEUMATOID ARTHRITIS
     Route: 065
  4. ADALIMUMAB [Suspect]
     Active Substance: ADALIMUMAB
     Indication: RHEUMATOID ARTHRITIS
     Route: 065

REACTIONS (13)
  - Sepsis [Fatal]
  - Cardiac failure [Fatal]
  - Central nervous system neoplasm [Unknown]
  - Cerebrovascular accident [Fatal]
  - Anaphylactic reaction [Unknown]
  - Extrapulmonary tuberculosis [Unknown]
  - Lymphoma [Unknown]
  - Rectal neoplasm [Unknown]
  - Renal neoplasm [Unknown]
  - Respiratory tract infection [Fatal]
  - Pulmonary tuberculosis [Unknown]
  - Breast neoplasm [Unknown]
  - Rash generalised [Unknown]
